FAERS Safety Report 13759866 (Version 2)
Quarter: 2017Q3

REPORT INFORMATION
  Report Type: Spontaneous
  Country: US (occurrence: US)
  Receive Date: 20170717
  Receipt Date: 20170724
  Transmission Date: 20171127
  Serious: Yes (Death, Hospitalization)
  Sender: FDA-Public Use
  Company Number: US-CELGENEUS-USA-20170704178

PATIENT
  Age: 78 Year
  Sex: Female

DRUGS (1)
  1. REVLIMID [Suspect]
     Active Substance: LENALIDOMIDE
     Indication: PLASMA CELL MYELOMA
     Dosage: 15 MILLIGRAM
     Route: 048
     Dates: start: 20150205, end: 20150213

REACTIONS (5)
  - Multiple organ dysfunction syndrome [Fatal]
  - Amyloidosis [Fatal]
  - Metabolic encephalopathy [Unknown]
  - Acute kidney injury [Fatal]
  - Hypotension [Fatal]

NARRATIVE: CASE EVENT DATE: 20150211
